FAERS Safety Report 15548487 (Version 2)
Quarter: 2018Q4

REPORT INFORMATION
  Report Type: Spontaneous
  Country: ID (occurrence: ID)
  Receive Date: 20181025
  Receipt Date: 20181025
  Transmission Date: 20190205
  Serious: Yes (Hospitalization, Other)
  Sender: FDA-Public Use
  Company Number: ID-ROCHE-2203831

PATIENT
  Sex: Female

DRUGS (3)
  1. CELLCEPT [Suspect]
     Active Substance: MYCOPHENOLATE MOFETIL\MYCOPHENOLATE MOFETIL HYDROCHLORIDE
     Indication: PRODUCT USED FOR UNKNOWN INDICATION
     Route: 065
  2. CELLCEPT [Suspect]
     Active Substance: MYCOPHENOLATE MOFETIL\MYCOPHENOLATE MOFETIL HYDROCHLORIDE
     Route: 065
  3. MEROPENEM. [Concomitant]
     Active Substance: MEROPENEM

REACTIONS (6)
  - Joint stiffness [Recovering/Resolving]
  - Headache [Recovering/Resolving]
  - Urine abnormality [Recovering/Resolving]
  - Leukocytosis [Recovering/Resolving]
  - Swelling [Recovering/Resolving]
  - Chills [Not Recovered/Not Resolved]
